FAERS Safety Report 8017504-5 (Version None)
Quarter: 2011Q4

REPORT INFORMATION
  Report Type: 
  Country: None (occurrence: None)
  Receive Date: 20111228
  Receipt Date: 20111228
  Transmission Date: 20120403
  Serious: Yes (Disabling, Other)
  Sender: FDA-Public Use
  Company Number: None

PATIENT
  Age: 33 Year
  Sex: Female
  Weight: 54.8852 kg

DRUGS (2)
  1. LYRICA [Suspect]
     Indication: CONVULSION
     Dosage: 75 MG. BID P.O.
     Route: 048
     Dates: start: 20111202, end: 20111205
  2. BENDYRL [Concomitant]

REACTIONS (6)
  - JOINT SWELLING [None]
  - AFFECTIVE DISORDER [None]
  - RASH [None]
  - CONFUSIONAL STATE [None]
  - SWELLING FACE [None]
  - CONDITION AGGRAVATED [None]
